FAERS Safety Report 6241919-9 (Version None)
Quarter: 2009Q2

REPORT INFORMATION
  Report Type: 
  Country: None (occurrence: None)
  Receive Date: 20090622
  Receipt Date: 20090609
  Transmission Date: 20091009
  Serious: No
  Sender: FDA-Public Use
  Company Number: 1-18766282

PATIENT
  Age: 66 Year
  Sex: Female

DRUGS (4)
  1. WARFARIN SODIUM [Suspect]
     Indication: KNEE ARTHROPLASTY
     Dosage: 2.5 MG DAILY, ORAL
     Route: 048
     Dates: start: 20090530
  2. TRAZODONE HCL [Concomitant]
  3. PRAVASTATIN [Concomitant]
  4. MULTIPLE UNSPECIFIED DRUGS [Concomitant]

REACTIONS (1)
  - CHEST PAIN [None]
